FAERS Safety Report 6598750-4 (Version None)
Quarter: 2010Q1

REPORT INFORMATION
  Report Type: 
  Country: None (occurrence: None)
  Receive Date: 20100224
  Receipt Date: 20100212
  Transmission Date: 20100710
  Serious: Yes (Life-Threatening)
  Sender: FDA-Public Use
  Company Number: US-MYLANLABS-2010S1000497

PATIENT
  Sex: Female

DRUGS (1)
  1. CLONAZEPAM [Suspect]

REACTIONS (15)
  - ABDOMINAL PAIN UPPER [None]
  - CHEST DISCOMFORT [None]
  - CRYING [None]
  - DECREASED APPETITE [None]
  - DIZZINESS [None]
  - DYSPNOEA [None]
  - FEELING COLD [None]
  - HYPOAESTHESIA [None]
  - MUSCULAR WEAKNESS [None]
  - PALLOR [None]
  - PALPITATIONS [None]
  - PRESYNCOPE [None]
  - TREMOR [None]
  - VERTIGO [None]
  - WEIGHT DECREASED [None]
